FAERS Safety Report 14240182 (Version 1)
Quarter: 2017Q4

REPORT INFORMATION
  Report Type: Spontaneous
  Country: US (occurrence: US)
  Receive Date: 20171129
  Receipt Date: 20171129
  Transmission Date: 20180321
  Serious: Yes (Life-Threatening, Hospitalization)
  Sender: FDA-Public Use
  Company Number: None

PATIENT
  Age: 61 Year
  Sex: Female
  Weight: 75.15 kg

DRUGS (4)
  1. GADOLINIUM [Suspect]
     Active Substance: GADOLINIUM
     Indication: SCAN WITH CONTRAST
     Route: 058
  2. VITAMIN C [Concomitant]
     Active Substance: ASCORBIC ACID
  3. GADOLINIUM [Suspect]
     Active Substance: GADOLINIUM
     Indication: NUCLEAR MAGNETIC RESONANCE IMAGING
     Route: 058
  4. VITAMIN D3 [Concomitant]
     Active Substance: CHOLECALCIFEROL

REACTIONS (13)
  - Nausea [None]
  - Nasal congestion [None]
  - Panic disorder [None]
  - Throat tightness [None]
  - Loss of consciousness [None]
  - Dysphonia [None]
  - Blood potassium decreased [None]
  - Dyspnoea [None]
  - Intellectual disability [None]
  - Headache [None]
  - Sinus disorder [None]
  - Hypotension [None]
  - Tremor [None]

NARRATIVE: CASE EVENT DATE: 20171128
